FAERS Safety Report 15084453 (Version 1)
Quarter: 2018Q3

REPORT INFORMATION
  Report Type: Spontaneous
  Country: FR (occurrence: FR)
  Receive Date: 20180628
  Receipt Date: 20180628
  Transmission Date: 20181010
  Serious: Yes (Other)
  Sender: FDA-Public Use
  Company Number: FR-TEVA-2018-FR-914927

PATIENT
  Age: 77 Year
  Sex: Male

DRUGS (9)
  1. TOUJEO [Concomitant]
     Active Substance: INSULIN GLARGINE
     Indication: DIABETES MELLITUS
     Route: 058
  2. LACTULOSE. [Suspect]
     Active Substance: LACTULOSE
     Indication: HEPATIC ENCEPHALOPATHY
     Route: 048
  3. ACIDE FOLIQUE [Concomitant]
     Active Substance: FOLIC ACID
     Indication: APLASTIC ANAEMIA
     Route: 048
     Dates: start: 20180413
  4. FERINJECT 50 MG/ML, SOLUTION INJECTABLE/POUR PERFUSION [Concomitant]
     Indication: APLASTIC ANAEMIA
     Route: 042
     Dates: start: 20180413, end: 20180413
  5. TADENAN 50 MG, CAPSULE MOLLE [Concomitant]
     Dosage: 2 DOSAGE FORMS DAILY;
     Route: 048
  6. CARVEDILOL. [Concomitant]
     Active Substance: CARVEDILOL
     Dosage: 1 DOSAGE FORMS DAILY;
     Route: 048
  7. EUPANTOL [Suspect]
     Active Substance: PANTOPRAZOLE SODIUM
     Indication: VARICES OESOPHAGEAL
     Dosage: 120 MILLIGRAM DAILY;
     Route: 048
     Dates: start: 20180413, end: 20180417
  8. TIXTAR 550 MG, COMPRIM? PELLICUL? [Suspect]
     Active Substance: RIFAXIMIN
     Indication: HEPATIC ENCEPHALOPATHY
     Dosage: 2 DOSAGE FORMS DAILY;
     Route: 048
     Dates: start: 201804
  9. PARACETAMOL [Concomitant]
     Active Substance: ACETAMINOPHEN
     Route: 048

REACTIONS (1)
  - Neutropenia [Not Recovered/Not Resolved]

NARRATIVE: CASE EVENT DATE: 20180413
